FAERS Safety Report 9869021 (Version 2)
Quarter: 2014Q1

REPORT INFORMATION
  Report Type: Report from Study
  Country: AU (occurrence: AU)
  Receive Date: 20140205
  Receipt Date: 20140224
  Transmission Date: 20141002
  Serious: Yes (Death, Other)
  Sender: FDA-Public Use
  Company Number: AU-ROCHE-1344699

PATIENT
  Age: 76 Year
  Sex: Male
  Weight: 68 kg

DRUGS (8)
  1. AVASTIN [Suspect]
     Indication: COLORECTAL CANCER METASTATIC
     Dosage: IN COMBINATION WITH XELODA, MOST RECENT DOSE: 30/JAN/2014
     Route: 042
     Dates: start: 20131128
  2. XELODA [Suspect]
     Indication: COLORECTAL CANCER METASTATIC
     Dosage: D1-14
     Route: 048
     Dates: start: 20131128
  3. IRINOTECAN [Concomitant]
     Indication: COLORECTAL CANCER METASTATIC
     Dosage: MOST RECENT DOSE: 30/JAN/2014
     Route: 042
     Dates: start: 20131128
  4. ATENOLOL [Concomitant]
     Indication: MYOCARDIAL ISCHAEMIA
     Route: 048
  5. CLOPIDOGREL [Concomitant]
     Indication: MYOCARDIAL ISCHAEMIA
     Route: 048
  6. RAMIPRIL [Concomitant]
     Indication: MYOCARDIAL ISCHAEMIA
     Route: 048
  7. OXALIPLATIN [Concomitant]
     Indication: COLORECTAL CANCER METASTATIC
  8. 5-FU [Concomitant]
     Indication: COLORECTAL CANCER METASTATIC

REACTIONS (4)
  - Acute myocardial infarction [Fatal]
  - Ventricular tachycardia [Fatal]
  - Ventricular fibrillation [Fatal]
  - Disease progression [Unknown]
